FAERS Safety Report 16449934 (Version 1)
Quarter: 2019Q2

REPORT INFORMATION
  Report Type: Spontaneous
  Country: GB (occurrence: GB)
  Receive Date: 20190619
  Receipt Date: 20190619
  Transmission Date: 20190711
  Serious: Yes (Life-Threatening, Hospitalization)
  Sender: FDA-Public Use
  Company Number: GB-ACCORD-133463

PATIENT
  Age: 63 Year
  Sex: Male
  Weight: 83 kg

DRUGS (1)
  1. SERTRALINE [Suspect]
     Active Substance: SERTRALINE HYDROCHLORIDE
     Indication: DEPRESSED MOOD
     Route: 048
     Dates: start: 20190417, end: 20190418

REACTIONS (3)
  - Intentional self-injury [Unknown]
  - Amnesia [Recovered/Resolved with Sequelae]
  - Acute psychosis [Recovered/Resolved with Sequelae]

NARRATIVE: CASE EVENT DATE: 20190418
